FAERS Safety Report 12181729 (Version 5)
Quarter: 2016Q3

REPORT INFORMATION
  Report Type: Spontaneous
  Country: JP (occurrence: JP)
  Receive Date: 20160315
  Receipt Date: 20160706
  Transmission Date: 20161109
  Serious: Yes (Life-Threatening, Hospitalization)
  Sender: FDA-Public Use
  Company Number: JP-ABBVIE-16P-087-1583880-00

PATIENT
  Age: 68 Year
  Sex: Male
  Weight: 70 kg

DRUGS (10)
  1. KLARICID [Suspect]
     Active Substance: CLARITHROMYCIN
     Indication: PYREXIA
     Route: 065
     Dates: start: 20151219, end: 20151220
  2. MAKYOKANSEKITO [Concomitant]
     Indication: NASOPHARYNGITIS
     Route: 048
     Dates: start: 20151217, end: 20151219
  3. BUDESONIDE W/FORMOTEROL FUMARATE [Concomitant]
     Active Substance: BUDESONIDE\FORMOTEROL FUMARATE
     Indication: NASOPHARYNGITIS
     Route: 055
     Dates: start: 20151217, end: 20151219
  4. TALION [Concomitant]
     Active Substance: BEPOTASTINE
     Indication: NASOPHARYNGITIS
     Route: 048
     Dates: start: 20151212, end: 20151214
  5. LOXOPROFEN SODIUM [Concomitant]
     Active Substance: LOXOPROFEN SODIUM
     Indication: NASOPHARYNGITIS
     Route: 048
     Dates: start: 20151217, end: 20151219
  6. LEFTOSE [Concomitant]
     Active Substance: LYSOZYME HYDROCHLORIDE
     Indication: NASOPHARYNGITIS
     Route: 048
     Dates: start: 20151212, end: 20151214
  7. FEXOFENADINE HYDROCHLORIDE. [Concomitant]
     Active Substance: FEXOFENADINE HYDROCHLORIDE
     Indication: DRUG HYPERSENSITIVITY
     Route: 048
     Dates: start: 20151214, end: 20151219
  8. REBAMIPIDE [Suspect]
     Active Substance: REBAMIPIDE
     Route: 065
     Dates: start: 20151217, end: 20151219
  9. KLARICID [Suspect]
     Active Substance: CLARITHROMYCIN
     Indication: NASOPHARYNGITIS
     Route: 048
     Dates: start: 20151212, end: 20151214
  10. REBAMIPIDE [Suspect]
     Active Substance: REBAMIPIDE
     Indication: NASOPHARYNGITIS
     Route: 048
     Dates: start: 20151212, end: 20151214

REACTIONS (2)
  - Self-medication [Unknown]
  - Interstitial lung disease [Recovered/Resolved]

NARRATIVE: CASE EVENT DATE: 20151219
